FAERS Safety Report 8159694-X (Version None)
Quarter: 2012Q1

REPORT INFORMATION
  Report Type: 
  Country: None (occurrence: None)
  Receive Date: 20120223
  Receipt Date: 20120215
  Transmission Date: 20120608
  Serious: Yes (Other)
  Sender: FDA-Public Use
  Company Number: US-JNJFOC-20120210946

PATIENT
  Sex: Female

DRUGS (3)
  1. ASPIRIN AND DIPYRIDAMOLE [Suspect]
     Indication: FOETAL EXPOSURE DURING PREGNANCY
     Route: 015
  2. ACETYLSALICYLIC ACID SRT [Suspect]
     Indication: FOETAL EXPOSURE DURING PREGNANCY
     Route: 015
  3. NIFEDIPINE [Suspect]
     Indication: FOETAL EXPOSURE DURING PREGNANCY
     Route: 015

REACTIONS (1)
  - FOETAL GROWTH RESTRICTION [None]
